FAERS Safety Report 15990004 (Version 1)
Quarter: 2019Q1

REPORT INFORMATION
  Report Type: Spontaneous
  Country: US (occurrence: US)
  Receive Date: 20190221
  Receipt Date: 20190221
  Transmission Date: 20190418
  Serious: No
  Sender: FDA-Public Use
  Company Number: US-HTU-2018US018093

PATIENT
  Sex: Male

DRUGS (1)
  1. VALCHLOR [Suspect]
     Active Substance: MECHLORETHAMINE
     Indication: MYCOSIS FUNGOIDES
     Dosage: THIN FILM, DAILY
     Route: 061
     Dates: start: 20181016

REACTIONS (7)
  - Erythema [Not Recovered/Not Resolved]
  - Wound secretion [Unknown]
  - Contusion [Not Recovered/Not Resolved]
  - Intentional dose omission [Unknown]
  - Dry skin [Unknown]
  - Skin hyperpigmentation [Unknown]
  - Scab [Unknown]
